FAERS Safety Report 8031787-7 (Version None)
Quarter: 2012Q1

REPORT INFORMATION
  Report Type: 
  Country: None (occurrence: None)
  Receive Date: 20120109
  Receipt Date: 20111229
  Transmission Date: 20120608
  Serious: Yes (Other)
  Sender: FDA-Public Use
  Company Number: JP-SANOFI-AVENTIS-2011SA085618

PATIENT
  Sex: Female
  Weight: 85.8 kg

DRUGS (5)
  1. INSULIN GLULISINE [Suspect]
     Dosage: DOSE:10 UNIT(S)
     Route: 065
     Dates: start: 20100908
  2. BAYCARON [Concomitant]
     Route: 048
     Dates: start: 20110820
  3. LANTUS [Concomitant]
     Dates: start: 20070514
  4. ALDACTONE [Concomitant]
     Route: 048
     Dates: start: 20110812
  5. LASIX [Concomitant]
     Route: 048
     Dates: start: 20110820

REACTIONS (2)
  - NEPHROGENIC ANAEMIA [None]
  - HAEMORRHAGE [None]
